FAERS Safety Report 14579098 (Version 1)
Quarter: 2018Q1

REPORT INFORMATION
  Report Type: Report from Study
  Country: JP (occurrence: JP)
  Receive Date: 20180227
  Receipt Date: 20180227
  Transmission Date: 20180509
  Serious: No
  Sender: FDA-Public Use
  Company Number: JP-BRISTOL-MYERS SQUIBB COMPANY-10996791

PATIENT
  Age: 33 Year
  Sex: Male
  Weight: 64 kg

DRUGS (5)
  1. STAVUDINE. [Suspect]
     Active Substance: STAVUDINE
     Indication: ACQUIRED IMMUNODEFICIENCY SYNDROME
     Dosage: 40 MG, BID
     Route: 048
     Dates: start: 19980506
  2. EPIVIR [Concomitant]
     Active Substance: LAMIVUDINE
     Indication: ACQUIRED IMMUNODEFICIENCY SYNDROME
     Dosage: 150 MG, BID
     Route: 048
     Dates: start: 19970318, end: 19980505
  3. VIDEX [Suspect]
     Active Substance: DIDANOSINE
     Indication: ACQUIRED IMMUNODEFICIENCY SYNDROME
     Dosage: 250 MG, UNK
     Route: 048
     Dates: start: 19980506
  4. RETROVIR [Concomitant]
     Active Substance: ZIDOVUDINE
     Indication: ACQUIRED IMMUNODEFICIENCY SYNDROME
     Dosage: 400 MG, UNK
     Route: 048
     Dates: start: 19970218, end: 19980505
  5. NORVIR [Suspect]
     Active Substance: RITONAVIR
     Indication: ACQUIRED IMMUNODEFICIENCY SYNDROME
     Dosage: 1.2 G, UNK
     Route: 048
     Dates: start: 19980506

REACTIONS (5)
  - Headache [Recovered/Resolved]
  - Aspartate aminotransferase increased [Recovered/Resolved]
  - Blood triglycerides increased [Not Recovered/Not Resolved]
  - Neuropathy peripheral [Recovered/Resolved]
  - Pyrexia [Recovered/Resolved]

NARRATIVE: CASE EVENT DATE: 19980507
